FAERS Safety Report 16549029 (Version 1)
Quarter: 2019Q3

REPORT INFORMATION
  Report Type: Spontaneous
  Country: US (occurrence: US)
  Receive Date: 20190709
  Receipt Date: 20190709
  Transmission Date: 20191004
  Serious: No
  Sender: FDA-Public Use
  Company Number: US-ACTELION-A-US2019-192702

PATIENT

DRUGS (1)
  1. TRACLEER [Suspect]
     Active Substance: BOSENTAN
     Indication: HYPOVENTILATION NEONATAL
     Route: 065

REACTIONS (3)
  - No adverse event [Unknown]
  - Therapeutic response unexpected [Unknown]
  - Product use issue [Unknown]
